FAERS Safety Report 13546361 (Version 1)
Quarter: 2017Q2

REPORT INFORMATION
  Report Type: Spontaneous
  Country: IN (occurrence: IN)
  Receive Date: 20170515
  Receipt Date: 20170515
  Transmission Date: 20170830
  Serious: Yes (Hospitalization, Other)
  Sender: FDA-Public Use
  Company Number: IN-TOLMAR, INC.-TOLG20170196

PATIENT
  Age: 14 Year
  Sex: Female

DRUGS (2)
  1. LEVETIRACETAM. [Suspect]
     Active Substance: LEVETIRACETAM
     Indication: EPILEPSY
     Dosage: 500 MG
     Route: 065
  2. PHENYTOIN. [Concomitant]
     Active Substance: PHENYTOIN
     Indication: EPILEPSY
     Dosage: 50 MG
     Route: 065

REACTIONS (8)
  - Palpable purpura [Recovered/Resolved]
  - Skin ulcer [Recovered/Resolved with Sequelae]
  - Pain [Recovered/Resolved]
  - Pruritus [Recovered/Resolved]
  - Hypersensitivity vasculitis [Recovered/Resolved with Sequelae]
  - Cutaneous vasculitis [Recovered/Resolved with Sequelae]
  - Eschar [Recovered/Resolved with Sequelae]
  - Skin necrosis [Recovered/Resolved with Sequelae]
